FAERS Safety Report 15020633 (Version 1)
Quarter: 2018Q2

REPORT INFORMATION
  Report Type: Spontaneous
  Country: US (occurrence: US)
  Receive Date: 20180618
  Receipt Date: 20180618
  Transmission Date: 20180711
  Serious: Yes (Other)
  Sender: FDA-Public Use
  Company Number: PHHY2018US017293

PATIENT
  Age: 56 Year
  Sex: Male

DRUGS (1)
  1. PHENTERMINE. [Suspect]
     Active Substance: PHENTERMINE
     Indication: OBESITY
     Route: 065

REACTIONS (7)
  - Tremor [Unknown]
  - Mental status changes [Unknown]
  - Muscle rigidity [Unknown]
  - Bradykinesia [Unknown]
  - Parkinsonism [Unknown]
  - Dyskinesia [Unknown]
  - Tardive dyskinesia [Unknown]
